FAERS Safety Report 8167050-3 (Version None)
Quarter: 2012Q1

REPORT INFORMATION
  Report Type: 
  Country: None (occurrence: None)
  Receive Date: 20120227
  Receipt Date: 20120224
  Transmission Date: 20120608
  Serious: Yes (Other)
  Sender: FDA-Public Use
  Company Number: US-PFIZER INC-2012049974

PATIENT
  Sex: Female
  Weight: 55.329 kg

DRUGS (4)
  1. CHANTIX [Suspect]
     Indication: SMOKING CESSATION THERAPY
     Dosage: 0.5 MG, 1X/DAY
     Route: 048
  2. NEXIUM [Concomitant]
     Indication: GASTROOESOPHAGEAL REFLUX DISEASE
     Dosage: 40 MG, 1X/DAY
  3. CHANTIX [Suspect]
     Dosage: 0.5 MG, UNK
     Route: 048
     Dates: start: 20111209
  4. CHANTIX [Suspect]
     Dosage: 1 MG, UNK
     Route: 048

REACTIONS (8)
  - POST-TRAUMATIC STRESS DISORDER [None]
  - ANXIETY [None]
  - POOR QUALITY SLEEP [None]
  - BLOOD ALKALINE PHOSPHATASE INCREASED [None]
  - IRRITABILITY [None]
  - NERVOUSNESS [None]
  - DEPRESSION [None]
  - BREAST CANCER [None]
